FAERS Safety Report 7313986-2 (Version None)
Quarter: 2011Q1

REPORT INFORMATION
  Report Type: 
  Country: None (occurrence: None)
  Receive Date: 20110225
  Receipt Date: 20110216
  Transmission Date: 20110831
  Serious: Yes (Hospitalization)
  Sender: FDA-Public Use
  Company Number: PHHO2010US19583

PATIENT
  Sex: Female
  Weight: 29.025 kg

DRUGS (14)
  1. HYDROCHLOROTHIAZIDE [Concomitant]
  2. MIRALAX [Concomitant]
  3. DILAUDID [Concomitant]
  4. FERROUS SULFATE TAB [Concomitant]
  5. COUMADIN [Concomitant]
  6. OMEPRAZOLE [Concomitant]
  7. AFINITOR [Suspect]
     Indication: COLORECTAL CANCER METASTATIC
     Dosage: 10 MG, QD
     Route: 048
     Dates: start: 20100903, end: 20101222
  8. K-PHOS NEUTRAL [Concomitant]
  9. VENTOLIN [Concomitant]
  10. COMPAZINE [Concomitant]
  11. POTASSIUM CHLORIDE [Concomitant]
  12. AMLODIPINE [Concomitant]
  13. MULTI-VITAMINS [Concomitant]
  14. TRAMADOL HCL [Concomitant]

REACTIONS (5)
  - TUMOUR RUPTURE [None]
  - CHEST TUBE INSERTION [None]
  - TACHYCARDIA [None]
  - HYDROPNEUMOTHORAX [None]
  - DYSPNOEA [None]
